FAERS Safety Report 8544923-0 (Version None)
Quarter: 2012Q3

REPORT INFORMATION
  Report Type: 
  Country: None (occurrence: None)
  Receive Date: 20120727
  Receipt Date: 20120718
  Transmission Date: 20120928
  Serious: Yes (Life-Threatening, Hospitalization)
  Sender: FDA-Public Use
  Company Number: GB-TEVA-349192ISR

PATIENT
  Age: 70 Year
  Sex: Male

DRUGS (8)
  1. RANITIDINE [Concomitant]
     Route: 048
  2. ACETAMINOPHEN [Concomitant]
     Route: 048
  3. OMEPRAZOLE [Concomitant]
     Route: 048
  4. METOCLOPRAMIDE [Concomitant]
     Route: 048
  5. BISOPROLOL FUMARATE [Concomitant]
     Dosage: IN THE MORNING
     Route: 048
  6. FUROSEMIDE [Concomitant]
     Dosage: IN THE MORNING
     Route: 048
  7. LISINOPRIL [Concomitant]
     Route: 048
  8. FLUCONAZOLE [Suspect]
     Indication: ORAL CANDIDIASIS
     Dosage: PATIENT TOOK 8 X 50 MG FLUCONAZOLE CAPSULES ON DAY 1 AND 6 X 50 MG FLUCONAZOLE CAPSULES ON DAY 2.
     Route: 048
     Dates: start: 20120517, end: 20120518

REACTIONS (2)
  - OVERDOSE [None]
  - RENAL FAILURE ACUTE [None]
